FAERS Safety Report 25780052 (Version 1)
Quarter: 2025Q3

REPORT INFORMATION
  Report Type: Spontaneous
  Country: US (occurrence: US)
  Receive Date: 20250909
  Receipt Date: 20250909
  Transmission Date: 20251021
  Serious: Yes (Other)
  Sender: AMGEN
  Company Number: US-AMGEN-USASP2025176596

PATIENT

DRUGS (4)
  1. RITUXIMAB [Suspect]
     Active Substance: RITUXIMAB
     Indication: Autoimmune haemolytic anaemia
     Route: 065
  2. IMATINIB [Concomitant]
     Active Substance: IMATINIB
     Dates: start: 201906
  3. DASATINIB [Concomitant]
     Active Substance: DASATINIB
  4. BOSUTINIB [Concomitant]
     Active Substance: BOSUTINIB

REACTIONS (3)
  - Chronic myeloid leukaemia [Unknown]
  - Autoimmune haemolytic anaemia [Unknown]
  - Off label use [Unknown]
